FAERS Safety Report 16926994 (Version 1)
Quarter: 2019Q4

REPORT INFORMATION
  Report Type: Spontaneous
  Country: US (occurrence: US)
  Receive Date: 20191016
  Receipt Date: 20191016
  Transmission Date: 20200122
  Serious: No
  Sender: FDA-Public Use
  Company Number: NVSC2019US003445

PATIENT
  Sex: Male

DRUGS (1)
  1. PREDNISOLONE ACETATE. [Suspect]
     Active Substance: PREDNISOLONE ACETATE
     Indication: POSTOPERATIVE CARE
     Dosage: 2 GTT, QD
     Route: 065
     Dates: start: 20190904

REACTIONS (3)
  - Ocular hyperaemia [Unknown]
  - Vision blurred [Unknown]
  - Photophobia [Unknown]
